FAERS Safety Report 8363268-5 (Version None)
Quarter: 2012Q2

REPORT INFORMATION
  Report Type: 
  Country: None (occurrence: None)
  Receive Date: 20120516
  Receipt Date: 20110421
  Transmission Date: 20120825
  Serious: No
  Sender: FDA-Public Use
  Company Number: US-GLAXOSMITHKLINE-A0924009A

PATIENT
  Age: 86 Year
  Sex: Female

DRUGS (2)
  1. BACITRACIN [Concomitant]
  2. BACTROBAN [Suspect]
     Indication: STAPHYLOCOCCAL INFECTION
     Dosage: 1APP PER DAY
     Route: 045
     Dates: start: 20110201

REACTIONS (3)
  - PRURITUS [None]
  - CONDITION AGGRAVATED [None]
  - DRUG INEFFECTIVE [None]
